FAERS Safety Report 16772083 (Version 2)
Quarter: 2019Q4

REPORT INFORMATION
  Report Type: Spontaneous
  Country: US (occurrence: US)
  Receive Date: 20190904
  Receipt Date: 20191003
  Transmission Date: 20200122
  Serious: Yes (Other)
  Sender: FDA-Public Use
  Company Number: US-PFIZER INC-2017389380

PATIENT
  Age: 67 Year
  Sex: Female
  Weight: 45.9 kg

DRUGS (3)
  1. LETROZOLE. [Concomitant]
     Active Substance: LETROZOLE
     Indication: HORMONE THERAPY
     Dosage: 2.5 MG, 1X/DAY[2.5 MG, TABLET, ONCE IN EVENING]
  2. ATENOLOL. [Concomitant]
     Active Substance: ATENOLOL
     Indication: HYPERTENSION
     Dosage: 25 MG, 1X/DAY[25 MG, TABLET, ORALLY, ONCE EACH EVENING]
     Route: 048
  3. IBRANCE [Suspect]
     Active Substance: PALBOCICLIB
     Indication: BREAST CANCER METASTATIC
     Dosage: 125 MG, 1X/DAY [125 MG, ONCE A DAY, IN EVENING]
     Dates: end: 20190811

REACTIONS (4)
  - Colorectal cancer [Unknown]
  - Second primary malignancy [Unknown]
  - Anaemia [Unknown]
  - Neoplasm progression [Unknown]
